FAERS Safety Report 11344268 (Version 1)
Quarter: 2015Q3

REPORT INFORMATION
  Report Type: Spontaneous
  Country: US (occurrence: None)
  Receive Date: 20150803
  Receipt Date: 20150803
  Transmission Date: 20151125
  Serious: Yes (Other)
  Sender: FDA-Public Use
  Company Number: None

PATIENT
  Age: 53 Year
  Sex: Male
  Weight: 90.72 kg

DRUGS (15)
  1. VITAMIN B12 [Concomitant]
     Active Substance: CYANOCOBALAMIN
  2. CARDIZEM [Concomitant]
     Active Substance: DILTIAZEM HYDROCHLORIDE
  3. RYTHMOL [Concomitant]
     Active Substance: PROPAFENONE HYDROCHLORIDE
  4. SAW PALMETTO [Concomitant]
     Active Substance: SAW PALMETTO
  5. VYTORIN [Concomitant]
     Active Substance: EZETIMIBE\SIMVASTATIN
  6. WARFARIN [Concomitant]
     Active Substance: WARFARIN
  7. DOXYCYCLINE. [Concomitant]
     Active Substance: DOXYCYCLINE
  8. VITAMIN C [Concomitant]
     Active Substance: ASCORBIC ACID
  9. SINGULAIRE [Concomitant]
  10. VIAGRA [Concomitant]
     Active Substance: SILDENAFIL CITRATE
  11. TIKOSYN [Suspect]
     Active Substance: DOFETILIDE
     Indication: ATRIAL FIBRILLATION
     Dosage: 1 PILLS  TWICE DAILY  TAKEN BY MOUTH
     Route: 048
     Dates: start: 20040414, end: 20060415
  12. RAMPRIL [Concomitant]
  13. VITAMIN E [Concomitant]
     Active Substance: .ALPHA.-TOCOPHEROL
  14. ANDROGEL [Concomitant]
     Active Substance: TESTOSTERONE
  15. ZINC [Concomitant]
     Active Substance: ZINC\ZINC CHLORIDE

REACTIONS (5)
  - Anger [None]
  - Mood altered [None]
  - Aggression [None]
  - Personality change [None]
  - Transient ischaemic attack [None]
